FAERS Safety Report 9081994 (Version 1)
Quarter: 2013Q1

REPORT INFORMATION
  Report Type: Report from Study
  Country: US (occurrence: US)
  Receive Date: 20130130
  Receipt Date: 20130130
  Transmission Date: 20140127
  Serious: No
  Sender: FDA-Public Use
  Company Number: US-ABBOTT-12P-163-0978083-00

PATIENT
  Age: 41 Year
  Sex: Male
  Weight: 77.18 kg

DRUGS (3)
  1. HUMIRA [Suspect]
     Indication: POLYARTHRITIS
     Dates: start: 20120906
  2. METHOTREXATE [Concomitant]
     Indication: POLYARTHRITIS
  3. FOLIC ACID [Concomitant]
     Indication: ILL-DEFINED DISORDER

REACTIONS (1)
  - Off label use [Not Recovered/Not Resolved]
